FAERS Safety Report 5594306-0 (Version None)
Quarter: 2008Q1

REPORT INFORMATION
  Report Type: 
  Country: None (occurrence: None)
  Receive Date: 20080117
  Receipt Date: 20080114
  Transmission Date: 20080703
  Serious: Yes (Other)
  Sender: FDA-Public Use
  Company Number: DE-BAYER-200717912GPV

PATIENT
  Sex: Female
  Weight: 62 kg

DRUGS (1)
  1. MAGNEVIST/ GADOPENTETIC ACID, DIMEGLUMINE SALT [Suspect]
     Indication: BREAST CANCER
     Dosage: AS USED: 15 ML
     Route: 042

REACTIONS (1)
  - URTICARIA [None]
